FAERS Safety Report 7787211-2 (Version None)
Quarter: 2011Q3

REPORT INFORMATION
  Report Type: 
  Country: None (occurrence: None)
  Receive Date: 20110929
  Receipt Date: 20110912
  Transmission Date: 20111222
  Serious: Yes (Hospitalization)
  Sender: FDA-Public Use
  Company Number: FR-JNJFOC-20090401860

PATIENT
  Sex: Female

DRUGS (7)
  1. TRAMADOL HCL [Suspect]
     Indication: PRODUCT USED FOR UNKNOWN INDICATION
     Dosage: 2 DAYS
     Route: 065
  2. ASPIRIN [Concomitant]
  3. FENOFIBRATE [Concomitant]
  4. ACTONEL [Concomitant]
  5. FIXICAL [Concomitant]
  6. TRAMADOL HCL [Suspect]
     Indication: ARTHRALGIA
     Route: 048
     Dates: start: 20090305, end: 20090307
  7. GUTRON [Concomitant]

REACTIONS (5)
  - HYPONATRAEMIA [None]
  - NAUSEA [None]
  - CONVULSION [None]
  - SOMNOLENCE [None]
  - VOMITING [None]
